FAERS Safety Report 15618279 (Version 15)
Quarter: 2024Q1

REPORT INFORMATION
  Report Type: Spontaneous
  Country: FR (occurrence: FR)
  Receive Date: 20181114
  Receipt Date: 20240129
  Transmission Date: 20240410
  Serious: Yes (Other)
  Sender: FDA-Public Use
  Company Number: PHHY2018FR151641

PATIENT
  Age: 84 Year
  Sex: Female
  Weight: 50 kg

DRUGS (17)
  1. FEMARA [Suspect]
     Active Substance: LETROZOLE
     Indication: Product used for unknown indication
     Dosage: 2.5 MG
     Route: 065
     Dates: start: 201809
  2. IBRANCE [Suspect]
     Active Substance: PALBOCICLIB
     Indication: Breast cancer female
     Dosage: 125 MG, QD
     Route: 065
     Dates: start: 201808
  3. IBRANCE [Suspect]
     Active Substance: PALBOCICLIB
     Dosage: 125 MG, DAILY
     Route: 065
     Dates: start: 20180916
  4. IBRANCE [Suspect]
     Active Substance: PALBOCICLIB
     Dosage: 125 MG
     Route: 065
     Dates: start: 20180918
  5. IBRANCE [Suspect]
     Active Substance: PALBOCICLIB
     Dosage: 100 MG, CYCLIC (3 WEEKS, 2 WEEKS WITHDRAWAL)
     Route: 065
  6. IBRANCE [Suspect]
     Active Substance: PALBOCICLIB
     Dosage: 75 MG
     Route: 065
     Dates: start: 20200127, end: 2020
  7. IBRANCE [Suspect]
     Active Substance: PALBOCICLIB
     Dosage: 75 MG
     Route: 065
     Dates: start: 202006
  8. IBRANCE [Suspect]
     Active Substance: PALBOCICLIB
     Dosage: 100 MG
     Route: 065
     Dates: start: 2020, end: 2020
  9. IBRANCE [Suspect]
     Active Substance: PALBOCICLIB
     Dosage: 100 MG, CYCLIC (3 WEEKS, 2 WEEKS WITHDRAWAL)
     Route: 065
  10. IBRANCE [Suspect]
     Active Substance: PALBOCICLIB
     Dosage: 100 MG, CYCLIC (3 WEEKS, 2 WEEKS WITHDRAWAL)
     Route: 065
  11. RAMIPRIL [Concomitant]
     Active Substance: RAMIPRIL
     Indication: Product used for unknown indication
     Dosage: UNK
     Route: 065
  12. RAMIPRIL [Concomitant]
     Active Substance: RAMIPRIL
     Dosage: UNK
     Route: 065
  13. RAMIPRIL [Concomitant]
     Active Substance: RAMIPRIL
     Dosage: UNK
     Route: 065
  14. HEXAMIDINE DIISETHIONATE [Concomitant]
     Active Substance: HEXAMIDINE DIISETHIONATE
     Indication: Product used for unknown indication
     Dosage: UNK
     Route: 065
  15. HEXAMIDINE DIISETHIONATE [Concomitant]
     Active Substance: HEXAMIDINE DIISETHIONATE
     Dosage: UNK
     Route: 065
  16. HEXAMIDINE DIISETHIONATE [Concomitant]
     Active Substance: HEXAMIDINE DIISETHIONATE
     Dosage: UNK
     Route: 065
  17. FUROSEMIDE [Concomitant]
     Active Substance: FUROSEMIDE
     Indication: Cardiac failure
     Dosage: UNK
     Route: 065

REACTIONS (57)
  - Rheumatoid arthritis [Recovered/Resolved]
  - Arrhythmia [Recovered/Resolved]
  - Blister [Unknown]
  - Suicidal ideation [Recovered/Resolved]
  - Visual acuity reduced [Unknown]
  - Bladder neoplasm [Unknown]
  - Pneumonitis [Recovered/Resolved]
  - Second primary malignancy [Unknown]
  - Cataract [Unknown]
  - Endometrial neoplasm [Unknown]
  - Dark circles under eyes [Recovered/Resolved]
  - Visual impairment [Recovered/Resolved]
  - Mood altered [Recovered/Resolved]
  - Throat tightness [Recovered/Resolved]
  - Feeling abnormal [Recovered/Resolved]
  - Lacrimation increased [Recovered/Resolved]
  - Drug withdrawal syndrome [Recovered/Resolved]
  - Hair colour changes [Recovered/Resolved]
  - Depressed mood [Recovered/Resolved]
  - Fear [Recovered/Resolved]
  - Eye disorder [Recovered/Resolved]
  - Arthropathy [Recovered/Resolved]
  - Tinnitus [Recovered/Resolved]
  - Platelet count decreased [Recovered/Resolved]
  - Blood iron decreased [Recovered/Resolved]
  - Haematocrit decreased [Recovered/Resolved]
  - Red blood cell count decreased [Recovered/Resolved]
  - Stress [Recovered/Resolved]
  - Finger deformity [Recovered/Resolved]
  - Asocial behaviour [Recovered/Resolved]
  - Pleural effusion [Recovered/Resolved]
  - Skin disorder [Recovered/Resolved]
  - Neoplasm progression [Unknown]
  - Pain in extremity [Recovered/Resolved]
  - Erythema [Recovered/Resolved]
  - Contusion [Recovered/Resolved]
  - Psychiatric symptom [Recovered/Resolved]
  - Nasopharyngitis [Recovered/Resolved]
  - Immune system disorder [Recovered/Resolved]
  - Head discomfort [Recovered/Resolved]
  - Mitral valve disease [Recovered/Resolved]
  - Cough [Unknown]
  - Haematoma [Unknown]
  - Cardiac disorder [Unknown]
  - Chest discomfort [Recovered/Resolved]
  - Alopecia [Recovered/Resolved]
  - Constipation [Recovered/Resolved]
  - White blood cell count decreased [Recovered/Resolved]
  - Diarrhoea [Recovered/Resolved]
  - Fatigue [Recovered/Resolved]
  - Dyspnoea [Recovered/Resolved]
  - Anxiety [Recovered/Resolved]
  - Nausea [Recovered/Resolved]
  - Heart rate increased [Recovered/Resolved]
  - Decreased appetite [Recovered/Resolved]
  - Malaise [Recovered/Resolved]
  - Vision blurred [Recovered/Resolved]

NARRATIVE: CASE EVENT DATE: 20180101
